FAERS Safety Report 5675731-6 (Version None)
Quarter: 2008Q1

REPORT INFORMATION
  Report Type: 
  Country: None (occurrence: None)
  Receive Date: 20080321
  Receipt Date: 20080318
  Transmission Date: 20080703
  Serious: Yes (Other)
  Sender: FDA-Public Use
  Company Number: IE-AVENTIS-200812463GDDC

PATIENT
  Age: 42 Year
  Sex: Female

DRUGS (10)
  1. FLAGYL [Suspect]
     Route: 042
     Dates: start: 20080122
  2. ANECTINE [Suspect]
     Route: 042
     Dates: start: 20080122
  3. DIFENE [Suspect]
     Indication: PREMEDICATION
     Route: 030
     Dates: start: 20080122
  4. FENTANYL CITRATE [Suspect]
     Route: 042
     Dates: start: 20080122
  5. MORPHINE SUL INJ [Suspect]
     Route: 042
     Dates: start: 20080122
  6. ONDANSETRON [Suspect]
     Route: 042
     Dates: start: 20080122
  7. PROPOFOL [Suspect]
     Route: 042
     Dates: start: 20080122
  8. CO-TRIMOXAZOLE [Suspect]
     Route: 042
     Dates: start: 20080122
  9. ATRACURIUM BESYLATE [Suspect]
     Route: 042
     Dates: start: 20080122
  10. LIGNOCAINE [Suspect]
     Dosage: DOSE: {1ML OF 1%
     Dates: start: 20080122

REACTIONS (4)
  - ANGIOEDEMA [None]
  - FACE OEDEMA [None]
  - GENERALISED OEDEMA [None]
  - OROPHARYNGEAL BLISTERING [None]
